FAERS Safety Report 5302503-4 (Version None)
Quarter: 2007Q2

REPORT INFORMATION
  Report Type: 
  Country: None (occurrence: None)
  Receive Date: 20070419
  Receipt Date: 20070411
  Transmission Date: 20071010
  Serious: Yes (Other)
  Sender: FDA-Public Use
  Company Number: US-ELI_LILLY_AND_COMPANY-US200704002554

PATIENT
  Age: 71 Year
  Sex: Female

DRUGS (3)
  1. HUMALOG [Suspect]
     Dosage: UNK, UNKNOWN
     Dates: start: 20020101, end: 20070101
  2. HUMALOG [Suspect]
     Dosage: UNK, UNKNOWN
     Dates: start: 20020101
  3. LANTUS [Concomitant]
     Dosage: UNK, UNKNOWN
     Dates: start: 20070101

REACTIONS (5)
  - BLINDNESS UNILATERAL [None]
  - CATARACT [None]
  - DIABETIC RETINOPATHY [None]
  - EYE HAEMORRHAGE [None]
  - VISUAL ACUITY REDUCED [None]
